FAERS Safety Report 9361522 (Version 2)
Quarter: 2013Q2

REPORT INFORMATION
  Report Type: Spontaneous
  Country: IT (occurrence: IT)
  Receive Date: 20130621
  Receipt Date: 20130626
  Transmission Date: 20140414
  Serious: Yes (Death)
  Sender: FDA-Public Use
  Company Number: IT-009507513-1306ITA009390

PATIENT
  Age: 52 Year
  Sex: Male
  Weight: 90 kg

DRUGS (3)
  1. PEGINTRON [Suspect]
     Indication: CHRONIC HEPATITIS C
     Dosage: UNK
     Route: 058
     Dates: start: 20130225, end: 20130603
  2. VICTRELIS [Suspect]
     Indication: CHRONIC HEPATITIS C
     Dosage: UNK
     Route: 048
     Dates: start: 20130327, end: 20130608
  3. RIBAVIRIN [Suspect]
     Indication: CHRONIC HEPATITIS C
     Dosage: UNK
     Route: 048
     Dates: start: 20130225, end: 20130608

REACTIONS (1)
  - Neutropenia [Fatal]
